FAERS Safety Report 17924203 (Version 1)
Quarter: 2020Q2

REPORT INFORMATION
  Report Type: Spontaneous
  Country: ES (occurrence: ES)
  Receive Date: 20200622
  Receipt Date: 20200622
  Transmission Date: 20200714
  Serious: Yes (Death, Hospitalization, Other)
  Sender: FDA-Public Use
  Company Number: ES-JNJFOC-20200617635

PATIENT

DRUGS (1)
  1. STELARA [Suspect]
     Active Substance: USTEKINUMAB
     Indication: CROHN^S DISEASE
     Route: 058

REACTIONS (20)
  - Clostridial infection [Unknown]
  - Escherichia infection [Unknown]
  - Sinusitis [Unknown]
  - Surgery [Unknown]
  - Hospitalisation [Unknown]
  - Pneumonia [Unknown]
  - Vaginal infection [Unknown]
  - Stoma closure [Unknown]
  - Pyelonephritis [Unknown]
  - Lymph node tuberculosis [Unknown]
  - Nasopharyngitis [Unknown]
  - Influenza [Unknown]
  - Endocarditis [Fatal]
  - Lung neoplasm [Fatal]
  - Herpes zoster [Unknown]
  - Oral herpes [Unknown]
  - Omphalitis [Unknown]
  - Gastroenteritis norovirus [Unknown]
  - Pulmonary tuberculosis [Unknown]
  - Bronchitis [Unknown]
